FAERS Safety Report 21300331 (Version 1)
Quarter: 2022Q3

REPORT INFORMATION
  Report Type: Spontaneous
  Country: SE (occurrence: SE)
  Receive Date: 20220907
  Receipt Date: 20220907
  Transmission Date: 20221026
  Serious: Yes (Death, Hospitalization)
  Sender: FDA-Public Use
  Company Number: SE-STRIDES ARCOLAB LIMITED-2022SP011186

PATIENT
  Age: 16 Year
  Sex: Female

DRUGS (21)
  1. OLANZAPINE [Suspect]
     Active Substance: OLANZAPINE
     Indication: Anxiety
     Dosage: 5 MILLIGRAM, UNKNOWN
     Route: 065
  2. OLANZAPINE [Suspect]
     Active Substance: OLANZAPINE
     Indication: Neurodegenerative disorder
  3. OLANZAPINE [Suspect]
     Active Substance: OLANZAPINE
     Indication: Hereditary disorder
  4. MELATONIN [Suspect]
     Active Substance: MELATONIN
     Indication: Hereditary disorder
     Dosage: UNK, INITIATED AT THE AGE OF 9 YEARS
     Route: 065
  5. MELATONIN [Suspect]
     Active Substance: MELATONIN
     Indication: Neurodegenerative disorder
  6. RISPERIDONE [Suspect]
     Active Substance: RISPERIDONE
     Indication: Anxiety
     Dosage: UNK, INITIATED AT THE AGE OF 9.5 YEARS
     Route: 065
  7. RISPERIDONE [Suspect]
     Active Substance: RISPERIDONE
     Indication: Neurodegenerative disorder
  8. RISPERIDONE [Suspect]
     Active Substance: RISPERIDONE
     Indication: Hereditary disorder
  9. SERTRALINE [Suspect]
     Active Substance: SERTRALINE HYDROCHLORIDE
     Indication: Anxiety
     Dosage: 25 MILLIGRAM PER DAY, INITIATED AT THE AGE OF 16.5 YEARS
     Route: 065
  10. SERTRALINE [Suspect]
     Active Substance: SERTRALINE HYDROCHLORIDE
     Indication: Neurodegenerative disorder
  11. SERTRALINE [Suspect]
     Active Substance: SERTRALINE HYDROCHLORIDE
     Indication: Hereditary disorder
  12. TRIMEPRAZINE [Suspect]
     Active Substance: TRIMEPRAZINE
     Indication: Agitation
     Dosage: 20 MILLIGRAM, TID
     Route: 065
  13. TRIMEPRAZINE [Suspect]
     Active Substance: TRIMEPRAZINE
     Indication: Neurodegenerative disorder
  14. TRIMEPRAZINE [Suspect]
     Active Substance: TRIMEPRAZINE
     Indication: Hereditary disorder
  15. LEVETIRACETAM [Concomitant]
     Active Substance: LEVETIRACETAM
     Indication: Epilepsy
     Dosage: UNK, INITIATED AT THE AGE OF 7.5 YEARS
     Route: 065
  16. LEVETIRACETAM [Concomitant]
     Active Substance: LEVETIRACETAM
     Indication: Neurodegenerative disorder
  17. LEVETIRACETAM [Concomitant]
     Active Substance: LEVETIRACETAM
     Indication: Hereditary disorder
  18. CLONAZEPAM [Concomitant]
     Active Substance: CLONAZEPAM
     Indication: Epilepsy
     Dosage: UNK, INITIATED AT THE AGE OF 9.5 YEARS
     Route: 065
  19. CLONAZEPAM [Concomitant]
     Active Substance: CLONAZEPAM
     Indication: Neurodegenerative disorder
  20. CLONAZEPAM [Concomitant]
     Active Substance: CLONAZEPAM
     Indication: Hereditary disorder
  21. CARBIDOPA\LEVODOPA [Concomitant]
     Active Substance: CARBIDOPA\LEVODOPA
     Indication: Neurodegenerative disorder
     Dosage: UNK
     Route: 065

REACTIONS (4)
  - Hyperthermia [Fatal]
  - Rhabdomyolysis [Fatal]
  - Serotonin syndrome [Fatal]
  - Off label use [Unknown]
